FAERS Safety Report 23579509 (Version 1)
Quarter: 2024Q1

REPORT INFORMATION
  Report Type: Spontaneous
  Country: US (occurrence: US)
  Receive Date: 20240229
  Receipt Date: 20240229
  Transmission Date: 20240410
  Serious: No
  Sender: FDA-Public Use
  Company Number: US-Breckenridge Pharmaceutical, Inc.-2153803

PATIENT
  Age: 67 Year
  Sex: Female

DRUGS (2)
  1. DULOXETINE HYDROCHLORIDE [Suspect]
     Active Substance: DULOXETINE HYDROCHLORIDE
     Route: 048
  2. DICLOFENAC SODIUM [Concomitant]
     Active Substance: DICLOFENAC\DICLOFENAC SODIUM

REACTIONS (11)
  - Blood pressure increased [Unknown]
  - Loss of personal independence in daily activities [Unknown]
  - Coordination abnormal [Unknown]
  - Arthralgia [Unknown]
  - Pelvic pain [Unknown]
  - Contusion [Unknown]
  - Headache [Unknown]
  - Visual impairment [Unknown]
  - Hyperhidrosis [Not Recovered/Not Resolved]
  - Pollakiuria [Unknown]
  - Muscle spasms [Not Recovered/Not Resolved]
